FAERS Safety Report 9121407 (Version 4)
Quarter: 2013Q2

REPORT INFORMATION
  Report Type: Spontaneous
  Country: US (occurrence: US)
  Receive Date: 20130225
  Receipt Date: 20130603
  Transmission Date: 20140414
  Serious: Yes (Other)
  Sender: FDA-Public Use
  Company Number: US-ROCHE-1168335

PATIENT
  Age: 32 Year
  Sex: Male

DRUGS (8)
  1. PEGASYS [Suspect]
     Indication: CHRONIC HEPATITIS C
     Route: 058
     Dates: start: 20121205, end: 20130528
  2. COPEGUS [Suspect]
     Indication: CHRONIC HEPATITIS C
     Dosage: 600/600 DIVIDED DOSE
     Route: 048
     Dates: start: 20121205, end: 20130528
  3. INCIVEK [Suspect]
     Indication: CHRONIC HEPATITIS C
     Route: 048
     Dates: start: 20121205
  4. PHENERGAN [Concomitant]
     Route: 065
  5. OXYCODONE [Concomitant]
     Indication: PAIN
     Route: 048
  6. LISINOPRIL [Concomitant]
     Indication: HYPERTENSION
  7. IMODIUM [Concomitant]
     Indication: DIARRHOEA
  8. PROMETHAZINE [Concomitant]
     Indication: VOMITING

REACTIONS (23)
  - Violence-related symptom [Unknown]
  - Asthenia [Unknown]
  - Pruritus [Unknown]
  - Flushing [Unknown]
  - Injection site erythema [Unknown]
  - Eating disorder [Unknown]
  - Nausea [Recovered/Resolved]
  - Vomiting [Recovered/Resolved]
  - Fatigue [Unknown]
  - Energy increased [Unknown]
  - Excessive exercise [Unknown]
  - Aggression [Unknown]
  - Anger [Unknown]
  - Fatigue [Unknown]
  - Burning sensation [Recovered/Resolved]
  - Bone pain [Recovered/Resolved]
  - Lacrimation increased [Recovered/Resolved]
  - Eye pain [Recovered/Resolved]
  - Headache [Recovered/Resolved]
  - White blood cell count decreased [Unknown]
  - Emotional disorder [Recovered/Resolved]
  - Memory impairment [Recovered/Resolved]
  - Diarrhoea [Recovering/Resolving]
